FAERS Safety Report 17899597 (Version 2)
Quarter: 2020Q2

REPORT INFORMATION
  Report Type: Spontaneous
  Country: JP (occurrence: JP)
  Receive Date: 20200616
  Receipt Date: 20200619
  Transmission Date: 20200714
  Serious: Yes (Death, Hospitalization)
  Sender: FDA-Public Use
  Company Number: JP-ROCHE-2622455

PATIENT
  Age: 68 Year
  Sex: Female

DRUGS (1)
  1. XELODA [Suspect]
     Active Substance: CAPECITABINE
     Indication: TRIPLE NEGATIVE BREAST CANCER
     Route: 048

REACTIONS (2)
  - Pulmonary tumour thrombotic microangiopathy [Unknown]
  - Acute respiratory failure [Fatal]
